FAERS Safety Report 10019961 (Version 2)
Quarter: 2014Q2

REPORT INFORMATION
  Report Type: Spontaneous
  Country: US (occurrence: US)
  Receive Date: 20140318
  Receipt Date: 20140618
  Transmission Date: 20141212
  Serious: No
  Sender: FDA-Public Use
  Company Number: US-GALDERMA-US14000177

PATIENT
  Age: 40 Year
  Sex: Female

DRUGS (9)
  1. MIRVASO (BRIMONIDINE) TOPICAL GEL, 0.33% [Suspect]
     Indication: ROSACEA
     Dosage: 0.33%
     Route: 061
     Dates: start: 20131001, end: 201312
  2. CETAPHIL GENTLE SKIN CLEANSER [Concomitant]
     Indication: THERAPEUTIC SKIN CARE TOPICAL
     Route: 061
     Dates: start: 2013
  3. CERAVE MOISTURIZING CREAM [Concomitant]
     Indication: DRY SKIN PROPHYLAXIS
     Route: 061
     Dates: start: 201307
  4. AVEDA MINERAL FOUNDATION [Concomitant]
     Route: 061
     Dates: start: 201207
  5. ASACOL [Concomitant]
     Indication: COLITIS ULCERATIVE
     Dosage: 3200 MG
     Route: 048
  6. SPIRONOLACTONE [Concomitant]
     Indication: ACNE
     Dosage: 100 MG
     Route: 048
     Dates: start: 2011
  7. VITAMIN D [Concomitant]
     Dosage: 1000 IU
     Route: 048
  8. MIRENA [Concomitant]
     Route: 015
     Dates: start: 201209
  9. MESALAMINE [Concomitant]
     Dosage: 1600 MG

REACTIONS (7)
  - Night sweats [Recovered/Resolved]
  - Feeling hot [Recovered/Resolved]
  - Nausea [Recovered/Resolved]
  - Flushing [Not Recovered/Not Resolved]
  - Skin burning sensation [Recovered/Resolved]
  - Drug ineffective [Recovered/Resolved]
  - Pain of skin [Not Recovered/Not Resolved]
